FAERS Safety Report 6249034-5 (Version None)
Quarter: 2009Q2

REPORT INFORMATION
  Report Type: 
  Country: None (occurrence: None)
  Receive Date: 20090625
  Receipt Date: 20090622
  Transmission Date: 20091009
  Serious: Yes (Other)
  Sender: FDA-Public Use
  Company Number: A0793072A

PATIENT
  Age: 68 Year
  Sex: Female

DRUGS (1)
  1. CALCIUM CARBONATE + FAMOTIDINE + MAGNESIUM HYDROXIDE TABLET (CACARB+ F [Suspect]
     Indication: DRUG USE FOR UNKNOWN INDICATION
     Dosage: ORAL
     Route: 048
     Dates: start: 20090621, end: 20090622

REACTIONS (5)
  - DRUG HYPERSENSITIVITY [None]
  - HEADACHE [None]
  - MALAISE [None]
  - RECTAL DISCHARGE [None]
  - RECTAL HAEMORRHAGE [None]
